FAERS Safety Report 15233152 (Version 1)
Quarter: 2018Q3

REPORT INFORMATION
  Report Type: Spontaneous
  Country: US (occurrence: US)
  Receive Date: 20180802
  Receipt Date: 20180802
  Transmission Date: 20181010
  Serious: No
  Sender: FDA-Public Use
  Company Number: US-ALLERGAN-1758385US

PATIENT
  Sex: Female

DRUGS (1)
  1. LEVOBUNOLOL HCL, 0.5% [Suspect]
     Active Substance: LEVOBUNOLOL HYDROCHLORIDE
     Indication: GLAUCOMA
     Dosage: 2 GTT, QAM
     Route: 047
     Dates: start: 201701

REACTIONS (2)
  - Incorrect dose administered [Unknown]
  - Product use complaint [Unknown]
